FAERS Safety Report 12497587 (Version 2)
Quarter: 2016Q3

REPORT INFORMATION
  Report Type: Spontaneous
  Country: DE (occurrence: DE)
  Receive Date: 20160625
  Receipt Date: 20160704
  Transmission Date: 20161109
  Serious: Yes (Hospitalization)
  Sender: FDA-Public Use
  Company Number: GXKR2012DE000973

PATIENT
  Age: 49 Year
  Sex: Female
  Weight: 92.9 kg

DRUGS (10)
  1. VALORON N                          /00628301/ [Concomitant]
     Active Substance: NALOXONE HYDROCHLORIDE\TILIDINE HYDROCHLORIDE
     Indication: SCIATICA
     Dosage: 3 DF, QD
     Route: 065
  2. L-THYROXIN-JOD [Concomitant]
     Indication: HYPOTHYROIDISM
     Dosage: 1 DF, QD
     Route: 065
  3. ISOKET [Interacting]
     Active Substance: ISOSORBIDE DINITRATE
     Indication: PRINZMETAL ANGINA
     Dosage: 20 MG, BID
     Route: 048
  4. TRILEPTAL ^CIBA-GEIGY^ [Concomitant]
     Indication: EPILEPSY
     Dosage: 300 MG, BID
     Route: 065
  5. VENLAFAXIN HEXAL [Interacting]
     Active Substance: VENLAFAXINE HYDROCHLORIDE
     Dosage: 75 MG, BID
     Route: 048
  6. SIMVASTATIN. [Concomitant]
     Active Substance: SIMVASTATIN
     Indication: HYPERCHOLESTEROLAEMIA
     Dosage: 10 MG, QD
     Route: 065
  7. TRANCOLON [Concomitant]
     Active Substance: MEPENZOLATE BROMIDE
     Indication: SCIATICA
     Dosage: 1 DF, QD
     Route: 065
  8. EXFORGE HCT [Suspect]
     Active Substance: AMLODIPINE BESYLATE\HYDROCHLOROTHIAZIDE\VALSARTAN
     Indication: HYPERTENSION
     Dosage: 1 DF, QD (10 AMLODIPINE/160 MG VALSARTAN/12.5 HYDROCHLOROTHIAZIDE)
     Route: 048
     Dates: end: 20120302
  9. VENLAFAXIN HEXAL [Interacting]
     Active Substance: VENLAFAXINE HYDROCHLORIDE
     Indication: PRODUCT USED FOR UNKNOWN INDICATION
     Dosage: 3 DF, QD (2-1-0)
     Route: 048
  10. CORVATON [Interacting]
     Active Substance: MOLSIDOMINE
     Indication: PRINZMETAL ANGINA
     Dosage: 2 MG, QD
     Route: 048

REACTIONS (5)
  - Diarrhoea [Not Recovered/Not Resolved]
  - Blood pressure fluctuation [Recovered/Resolved]
  - Vomiting [Not Recovered/Not Resolved]
  - Poisoning [Recovered/Resolved]
  - Gastrointestinal disorder [Not Recovered/Not Resolved]
